FAERS Safety Report 6635854-1 (Version None)
Quarter: 2010Q1

REPORT INFORMATION
  Report Type: 
  Country: None (occurrence: None)
  Receive Date: 20100311
  Receipt Date: 20100224
  Transmission Date: 20100710
  Serious: Yes (Hospitalization)
  Sender: FDA-Public Use
  Company Number: KV200900812

PATIENT
  Age: 73 Year
  Sex: Female
  Weight: 58.5 kg

DRUGS (18)
  1. PROPAFENONE HYDROCHLORIDE [Suspect]
     Indication: ATRIAL FIBRILLATION
     Dosage: 150 MG, TID, ORAL
     Route: 048
     Dates: start: 20050720, end: 20080910
  2. PROPAFENONE HYDROCHLORIDE [Suspect]
     Indication: ATRIAL FIBRILLATION
     Dosage: 150 MG, TID, ORAL
     Route: 048
     Dates: start: 20090901
  3. PROPAFENONE HYDROCHLORIDE [Suspect]
  4. PROPAFENONE HYDROCHLORIDE [Suspect]
  5. LEVOTHYROXINE SODIUM [Concomitant]
  6. PULMICORT [Concomitant]
  7. PRILOSEC [Concomitant]
  8. ATROVENT [Concomitant]
  9. DIOVAN [Concomitant]
  10. HYDROCHLOROTHIAZIDE [Concomitant]
  11. AMLODIPINE [Concomitant]
  12. VALIUM [Concomitant]
  13. TYLENOL [Concomitant]
  14. MIRALAX [Concomitant]
  15. MULTI-VITAMINS [Concomitant]
  16. NORVASC [Concomitant]
  17. PREMARIN [Concomitant]
  18. VAGIFEM [Concomitant]

REACTIONS (60)
  - ABDOMINAL DISTENSION [None]
  - ABDOMINAL PAIN [None]
  - ABDOMINAL PAIN UPPER [None]
  - ACCIDENTAL OVERDOSE [None]
  - ACTIVITIES OF DAILY LIVING IMPAIRED [None]
  - ALOPECIA [None]
  - ALOPECIA EFFLUVIUM [None]
  - ANXIETY [None]
  - ARTHRALGIA [None]
  - ASTHENIA [None]
  - ATRIAL FIBRILLATION [None]
  - ATRIOVENTRICULAR BLOCK FIRST DEGREE [None]
  - CHEST PAIN [None]
  - CHILLS [None]
  - COLD SWEAT [None]
  - CONSTIPATION [None]
  - COUGH [None]
  - DIARRHOEA [None]
  - DIVERTICULUM [None]
  - DIZZINESS [None]
  - DRUG INEFFECTIVE [None]
  - DRY MOUTH [None]
  - DYSGEUSIA [None]
  - DYSPEPSIA [None]
  - DYSPNOEA [None]
  - EXTRASYSTOLES [None]
  - FATIGUE [None]
  - FEELING ABNORMAL [None]
  - FEELING COLD [None]
  - FLATULENCE [None]
  - FLUSHING [None]
  - GASTRIC ULCER [None]
  - GLUCOSE TOLERANCE IMPAIRED [None]
  - HAEMORRHOIDS [None]
  - HEADACHE [None]
  - HEART RATE INCREASED [None]
  - HYPERHIDROSIS [None]
  - HYPERTENSION [None]
  - HYPOAESTHESIA [None]
  - INJURY [None]
  - JOINT SWELLING [None]
  - MALAISE [None]
  - MUSCULOSKELETAL PAIN [None]
  - NAUSEA [None]
  - NON-CARDIAC CHEST PAIN [None]
  - OEDEMA PERIPHERAL [None]
  - PAIN IN EXTREMITY [None]
  - PAIN IN JAW [None]
  - PALPITATIONS [None]
  - PANIC ATTACK [None]
  - PANIC REACTION [None]
  - PARAESTHESIA [None]
  - PRESYNCOPE [None]
  - SICK SINUS SYNDROME [None]
  - SINUS BRADYCARDIA [None]
  - TINNITUS [None]
  - URINARY RETENTION [None]
  - URINARY TRACT INFECTION [None]
  - VISION BLURRED [None]
  - VOMITING [None]
